FAERS Safety Report 20176729 (Version 1)
Quarter: 2021Q4

REPORT INFORMATION
  Report Type: Spontaneous
  Country: FR (occurrence: FR)
  Receive Date: 20211213
  Receipt Date: 20211213
  Transmission Date: 20220304
  Serious: Yes (Other)
  Sender: FDA-Public Use
  Company Number: None

PATIENT
  Age: 91 Year
  Sex: Female

DRUGS (2)
  1. CEFTRIAXONE SODIUM [Suspect]
     Active Substance: CEFTRIAXONE SODIUM
     Indication: Infection
     Dosage: 1 G (1G 1 FOIS PAR JOUR LE SOIR)
     Route: 030
     Dates: start: 20211112, end: 20211118
  2. FLAGYL [Suspect]
     Active Substance: METRONIDAZOLE\METRONIDAZOLE HYDROCHLORIDE
     Indication: Infection
     Dosage: 3 DOSAGE FORM (500 MG 3 FOIS PAR JOUR)
     Route: 048
     Dates: start: 20211112, end: 20211118

REACTIONS (2)
  - Lip swelling [Not Recovered/Not Resolved]
  - Swollen tongue [Not Recovered/Not Resolved]

NARRATIVE: CASE EVENT DATE: 20211118
